FAERS Safety Report 7995231-8 (Version None)
Quarter: 2011Q4

REPORT INFORMATION
  Report Type: 
  Country: None (occurrence: None)
  Receive Date: 20111220
  Receipt Date: 20111220
  Transmission Date: 20120403
  Serious: No
  Sender: FDA-Public Use
  Company Number: None

PATIENT
  Age: 22 Year
  Sex: Female
  Weight: 74.842 kg

DRUGS (1)
  1. NUVARING [Suspect]
     Indication: CONTRACEPTION
     Dosage: 1 VAGINAL RING
     Route: 067
     Dates: start: 20111122, end: 20111213

REACTIONS (4)
  - DRUG DISPENSING ERROR [None]
  - STRESS [None]
  - EXPIRED DRUG ADMINISTERED [None]
  - ANXIETY [None]
